FAERS Safety Report 19927057 (Version 1)
Quarter: 2021Q4

REPORT INFORMATION
  Report Type: Spontaneous
  Country: US (occurrence: US)
  Receive Date: 20211007
  Receipt Date: 20211007
  Transmission Date: 20220303
  Serious: No
  Sender: FDA-Public Use
  Company Number: US-INDIVIOR US-INDV-130144-2021

PATIENT

DRUGS (1)
  1. SUBOXONE [Suspect]
     Active Substance: BUPRENORPHINE HYDROCHLORIDE\NALOXONE HYDROCHLORIDE
     Indication: Pain
     Dosage: 2 MILLIGRAM , (2 PER DAY)
     Route: 065

REACTIONS (5)
  - Off label use [Not Recovered/Not Resolved]
  - Energy increased [Unknown]
  - Therapeutic response unexpected [Unknown]
  - Anorgasmia [Unknown]
  - Libido decreased [Unknown]
